FAERS Safety Report 14525838 (Version 1)
Quarter: 2018Q1

REPORT INFORMATION
  Report Type: Spontaneous
  Country: US (occurrence: US)
  Receive Date: 20180211
  Receipt Date: 20180211
  Transmission Date: 20180509
  Serious: Yes (Other)
  Sender: FDA-Public Use
  Company Number: None

PATIENT
  Age: 66 Year
  Sex: Male
  Weight: 128.25 kg

DRUGS (17)
  1. METHYLPREDNISOLONE. [Concomitant]
     Active Substance: METHYLPREDNISOLONE
  2. LOSARTAN. [Concomitant]
     Active Substance: LOSARTAN
  3. MIRALAX [Concomitant]
     Active Substance: POLYETHYLENE GLYCOL 3350
  4. FLUTICASONE. [Suspect]
     Active Substance: FLUTICASONE
     Indication: SINUS CONGESTION
     Route: 055
  5. PRASUGREL. [Concomitant]
     Active Substance: PRASUGREL
  6. IBUPROFIN [Concomitant]
     Active Substance: IBUPROFEN
  7. GLIMEPIRIDE. [Concomitant]
     Active Substance: GLIMEPIRIDE
  8. GLUCOSAMINE AND CHONHYDRATE [Concomitant]
  9. ULORIC [Concomitant]
     Active Substance: FEBUXOSTAT
  10. D [Concomitant]
  11. TUMERIC [Concomitant]
     Active Substance: HERBALS\TURMERIC
  12. SYNJARDY [Concomitant]
     Active Substance: EMPAGLIFLOZIN\METFORMIN HYDROCHLORIDE
  13. MAGNESIUM [Concomitant]
     Active Substance: MAGNESIUM
  14. TYLENOL PM [Concomitant]
     Active Substance: ACETAMINOPHEN\DIPHENHYDRAMINE
  15. VITAMIN B12 [Concomitant]
     Active Substance: CYANOCOBALAMIN
  16. METOPROLOL TARTRATE. [Concomitant]
     Active Substance: METOPROLOL TARTRATE
  17. LEUTINE [Concomitant]

REACTIONS (2)
  - Intraocular pressure decreased [None]
  - Intraocular pressure increased [None]
